FAERS Safety Report 20110225 (Version 3)
Quarter: 2022Q1

REPORT INFORMATION
  Report Type: Report from Study
  Country: DE (occurrence: None)
  Receive Date: 20211124
  Receipt Date: 20220218
  Transmission Date: 20220423
  Serious: Yes (Hospitalization)
  Sender: FDA-Public Use
  Company Number: DE-Eisai Medical Research-EC-2021-103683

PATIENT
  Age: 67 Year
  Sex: Female
  Weight: 86 kg

DRUGS (2)
  1. ERIBULIN [Suspect]
     Active Substance: ERIBULIN
     Indication: Breast cancer
     Route: 042
     Dates: start: 20211109, end: 20211204
  2. LEVOTHYROXINE SODIUM [Concomitant]
     Active Substance: LEVOTHYROXINE SODIUM
     Indication: Hypothyroidism
     Route: 048

REACTIONS (3)
  - Febrile neutropenia [Unknown]
  - Neutropenia [Not Recovered/Not Resolved]
  - Urinary tract infection [Recovered/Resolved]

NARRATIVE: CASE EVENT DATE: 20211118
